FAERS Safety Report 10279583 (Version 1)
Quarter: 2014Q3

REPORT INFORMATION
  Report Type: Spontaneous
  Country: US (occurrence: None)
  Receive Date: 20140702
  Receipt Date: 20140702
  Transmission Date: 20150326
  Serious: Yes (Death)
  Sender: FDA-Public Use
  Company Number: None

PATIENT
  Age: 67 Year
  Sex: Female
  Weight: 75 kg

DRUGS (4)
  1. BEVACIZUMAB (RHUMAB VEGF) (704865) [Suspect]
     Active Substance: BEVACIZUMAB
  2. TAXOL [Suspect]
     Active Substance: PACLITAXEL
  3. CARBOPLATIN. [Suspect]
     Active Substance: CARBOPLATIN
  4. ERBITUX [Suspect]
     Active Substance: CETUXIMAB

REACTIONS (19)
  - Cough [None]
  - Decreased appetite [None]
  - Nausea [None]
  - Pancytopenia [None]
  - Dizziness [None]
  - Weight decreased [None]
  - Oxygen saturation decreased [None]
  - Vomiting [None]
  - Shock [None]
  - Diarrhoea [None]
  - Failure to thrive [None]
  - Renal failure acute [None]
  - Iatrogenic injury [None]
  - Toxicity to various agents [None]
  - Vision blurred [None]
  - Dehydration [None]
  - Hypotension [None]
  - Headache [None]
  - Constipation [None]

NARRATIVE: CASE EVENT DATE: 20140617
